FAERS Safety Report 9102840 (Version 2)
Quarter: 2013Q1

REPORT INFORMATION
  Report Type: Spontaneous
  Country: FR (occurrence: FR)
  Receive Date: 20130219
  Receipt Date: 20130314
  Transmission Date: 20140127
  Serious: Yes (Death, Life-Threatening, Hospitalization)
  Sender: FDA-Public Use
  Company Number: FR-PFIZER INC-2013061444

PATIENT
  Age: 83 Year
  Sex: Male

DRUGS (5)
  1. TRIATEC [Suspect]
     Indication: HYPERTENSION
     Dosage: 10 MG, DAILY
     Route: 048
     Dates: start: 2008, end: 20121224
  2. MONO-TILDIEM [Suspect]
     Indication: HYPERTENSION
     Dosage: 200 MG, DAILY
     Route: 048
     Dates: start: 2008, end: 20121224
  3. PLAVIX [Suspect]
     Indication: THROMBOSIS PROPHYLAXIS
     Dosage: 75 MG, DAILY
     Route: 048
     Dates: start: 2008, end: 20121224
  4. ANDROCUR [Suspect]
     Indication: PROSTATIC ADENOMA
     Dosage: 100 MG, 3X/DAY
     Route: 048
     Dates: start: 20120614, end: 20121219
  5. MIANSERIN [Suspect]
     Dosage: 30 MG, DAILY
     Route: 048
     Dates: start: 2008, end: 20121224

REACTIONS (3)
  - Hepatitis fulminant [Fatal]
  - Hepatic failure [Fatal]
  - Renal failure [Fatal]
